FAERS Safety Report 4306463-4 (Version None)
Quarter: 2004Q1

REPORT INFORMATION
  Report Type: 
  Country: None (occurrence: None)
  Receive Date: 20040225
  Receipt Date: 20030811
  Transmission Date: 20041129
  Serious: No
  Sender: FDA-Public Use
  Company Number: US-BRISTOL-MYERS SQUIBB COMPANY-12351623

PATIENT
  Age: 26 Year
  Sex: Female
  Weight: 52 kg

DRUGS (1)
  1. EXCEDRIN ES TABS [Suspect]
     Indication: ABDOMINAL PAIN
     Route: 048
     Dates: start: 20030811

REACTIONS (2)
  - HEART RATE INCREASED [None]
  - VISION BLURRED [None]
